FAERS Safety Report 21663917 (Version 1)
Quarter: 2022Q4

REPORT INFORMATION
  Report Type: Report from Study
  Country: IT (occurrence: IT)
  Receive Date: 20221130
  Receipt Date: 20221130
  Transmission Date: 20230113
  Serious: Yes (Other)
  Sender: FDA-Public Use
  Company Number: IT-JNJFOC-20221164641

PATIENT
  Age: 15 Year
  Sex: Female

DRUGS (1)
  1. INVEGA [Suspect]
     Active Substance: PALIPERIDONE
     Indication: Product used for unknown indication
     Dosage: 63 MG/TOTAL (1DAY)
     Route: 048

REACTIONS (3)
  - Intentional self-injury [Unknown]
  - Drug abuse [Unknown]
  - Intentional overdose [Unknown]
